FAERS Safety Report 8132905-2 (Version None)
Quarter: 2012Q1

REPORT INFORMATION
  Report Type: 
  Country: None (occurrence: None)
  Receive Date: 20120207
  Receipt Date: 20120124
  Transmission Date: 20120608
  Serious: Yes (Hospitalization)
  Sender: FDA-Public Use
  Company Number: SAN_00028_2012

PATIENT
  Age: 60 Year
  Sex: Female

DRUGS (1)
  1. METFORMIN HCL [Suspect]
     Indication: DIABETES MELLITUS
     Dates: start: 20091101

REACTIONS (2)
  - LEUKOCYTOCLASTIC VASCULITIS [None]
  - TREATMENT NONCOMPLIANCE [None]
